FAERS Safety Report 25726127 (Version 1)
Quarter: 2025Q3

REPORT INFORMATION
  Report Type: Spontaneous
  Country: CN (occurrence: CN)
  Receive Date: 20250826
  Receipt Date: 20250826
  Transmission Date: 20251020
  Serious: Yes (Other)
  Sender: BAXTER
  Company Number: None

PATIENT
  Age: 36 Year
  Sex: Female
  Weight: 68 kg

DRUGS (14)
  1. IFOSFAMIDE [Suspect]
     Active Substance: IFOSFAMIDE
     Indication: Hodgkin^s disease
     Dosage: 3 G, QD
     Route: 041
     Dates: start: 20250501, end: 20250503
  2. IFOSFAMIDE [Suspect]
     Active Substance: IFOSFAMIDE
     Indication: Lymphocyte count increased
  3. ETOPOSIDE [Suspect]
     Active Substance: ETOPOSIDE
     Indication: Hodgkin^s disease
     Dosage: 5 ML, QD
     Route: 041
     Dates: start: 20250501, end: 20250503
  4. ETOPOSIDE [Suspect]
     Active Substance: ETOPOSIDE
     Indication: Lymphocyte count increased
     Dosage: 3.75 ML, QD
     Route: 041
     Dates: start: 20250501, end: 20250503
  5. OXALIPLATIN [Suspect]
     Active Substance: OXALIPLATIN
     Indication: Hodgkin^s disease
     Dosage: 220 MG, QD
     Route: 041
     Dates: start: 20250502, end: 20250502
  6. OXALIPLATIN [Suspect]
     Active Substance: OXALIPLATIN
     Indication: Lymphocyte count increased
  7. BRENTUXIMAB VEDOTIN [Suspect]
     Active Substance: BRENTUXIMAB VEDOTIN
     Indication: Hodgkin^s disease
     Dosage: 50 MG, QD
     Route: 041
     Dates: start: 20250430, end: 20250430
  8. BRENTUXIMAB VEDOTIN [Suspect]
     Active Substance: BRENTUXIMAB VEDOTIN
     Indication: Lymphocyte count increased
     Dosage: 72.4 MG, QD
     Route: 041
     Dates: start: 20250430, end: 20250430
  9. SODIUM CHLORIDE [Suspect]
     Active Substance: SODIUM CHLORIDE
     Indication: Vehicle solution use
     Dosage: NS 100 ML, QD (SODIUM CHLORIDE+ BRENTUXIMAB VEDOTIN)
     Route: 041
     Dates: start: 20250430, end: 20250430
  10. SODIUM CHLORIDE [Suspect]
     Active Substance: SODIUM CHLORIDE
     Dosage: NS 100 ML, QD (SODIUM CHLORIDE+ BRENTUXIMAB VEDOTIN)
     Route: 041
     Dates: start: 20250430, end: 20250430
  11. SODIUM CHLORIDE [Suspect]
     Active Substance: SODIUM CHLORIDE
     Dosage: NS 500 ML, QD (SODIUM CHLORIDE + ETOPOSIDE)
     Route: 041
     Dates: start: 20250501, end: 20250503
  12. SODIUM CHLORIDE [Suspect]
     Active Substance: SODIUM CHLORIDE
     Dosage: NS 500 ML, QD (SODIUM CHLORIDE + IFOSFAMIDE)
     Route: 041
     Dates: start: 20250501, end: 20250503
  13. SODIUM CHLORIDE [Suspect]
     Active Substance: SODIUM CHLORIDE
     Dosage: NS 300 ML, QD (SODIUM CHLORIDE + ETOPOSIDE)
     Route: 041
     Dates: start: 20250501, end: 20250503
  14. DEXTROSE [Suspect]
     Active Substance: DEXTROSE MONOHYDRATE
     Indication: Vehicle solution use
     Dosage: 5% GS 500 ML, QD (SODIUM CHLORIDE + OXALIPLATIN)
     Route: 041
     Dates: start: 20250502, end: 20250502

REACTIONS (1)
  - Bicytopenia [Recovered/Resolved]

NARRATIVE: CASE EVENT DATE: 20250504
